FAERS Safety Report 7265673-7 (Version None)
Quarter: 2011Q1

REPORT INFORMATION
  Report Type: 
  Country: None (occurrence: None)
  Receive Date: 20110131
  Receipt Date: 20110125
  Transmission Date: 20110831
  Serious: Yes (Life-Threatening, Hospitalization)
  Sender: FDA-Public Use
  Company Number: CA-MERCK-1010USA00595

PATIENT
  Age: 64 Year
  Sex: Female
  Weight: 125 kg

DRUGS (8)
  1. FOSAMAX [Suspect]
     Route: 048
  2. HYDROCHLOROTHIAZIDE AND TRIAMTERENE [Suspect]
     Route: 065
  3. AVANDAMET [Suspect]
     Route: 065
  4. CALCIUM (UNSPECIFIED) AND VITAMIN D (UNSPECIFIED) [Concomitant]
     Route: 065
  5. STUDY DRUG (UNSPECIFIED) [Suspect]
     Route: 048
  6. ZOCOR [Suspect]
     Route: 048
  7. PRINIVIL [Suspect]
     Route: 048
  8. METOPROLOL [Suspect]
     Route: 065

REACTIONS (2)
  - PULMONARY EMBOLISM [None]
  - DYSPNOEA [None]
